FAERS Safety Report 4289522-4 (Version None)
Quarter: 2004Q1

REPORT INFORMATION
  Report Type: 
  Country: None (occurrence: None)
  Receive Date: 20040126
  Receipt Date: 20030916
  Transmission Date: 20041129
  Serious: No
  Sender: FDA-Public Use
  Company Number: USA030435737

PATIENT
  Age: 60 Year
  Sex: Female
  Weight: 74 kg

DRUGS (5)
  1. FORTEO [Suspect]
     Indication: OSTEOPOROSIS
     Dosage: 20 UG/DAY
     Dates: start: 20030424
  2. ATENOLOL [Concomitant]
  3. LEVOXYL (LEVOTHYROXINE SODUIM) [Concomitant]
  4. MULTI-VITAMIN [Concomitant]
  5. PRAVACHOL [Concomitant]

REACTIONS (7)
  - ARTHRALGIA [None]
  - DIZZINESS [None]
  - HEADACHE [None]
  - HEART RATE INCREASED [None]
  - INSOMNIA [None]
  - NAUSEA [None]
  - PAIN IN EXTREMITY [None]
